FAERS Safety Report 7197938-1 (Version None)
Quarter: 2010Q4

REPORT INFORMATION
  Report Type: 
  Country: None (occurrence: None)
  Receive Date: 20101227
  Receipt Date: 20101221
  Transmission Date: 20110411
  Serious: Yes (Hospitalization)
  Sender: FDA-Public Use
  Company Number: ES-ROCHE-744268

PATIENT
  Sex: Male
  Weight: 63.6 kg

DRUGS (12)
  1. BEVACIZUMAB [Suspect]
     Indication: COLORECTAL CANCER
     Dosage: FORM: INFUSION, DATE OF LAST DOSE PRIOR SAE: 10 NOV 2010.
     Route: 042
     Dates: start: 20101020, end: 20101116
  2. BEVACIZUMAB [Suspect]
     Route: 042
     Dates: start: 20101213
  3. CAPECITABINE [Suspect]
     Indication: COLORECTAL CANCER
     Dosage: FREQUENCY: DAILY, TEMPORARILY INTERRUPTED, DATE OF LAST DOSE PRIOR TO SAE: 16 NOV 2010.
     Route: 048
     Dates: start: 20101020, end: 20101116
  4. CAPECITABINE [Suspect]
     Dosage: DOSE REDUCED.
     Route: 048
     Dates: start: 20101213
  5. IRINOTECAN HCL [Suspect]
     Indication: COLORECTAL CANCER
     Dosage: DATE OF LAST DOSE PRIOR TO SAE: 10 NOV 2010.
     Route: 042
     Dates: start: 20101020, end: 20101116
  6. IRINOTECAN HCL [Suspect]
     Dosage: DOSE REDUCED.
     Route: 042
     Dates: start: 20101213
  7. INDAPAMIDA [Concomitant]
  8. VANDRAL [Concomitant]
  9. IDALPREM [Concomitant]
  10. OMEPRAZOLE [Concomitant]
  11. PERINDOPRIL [Concomitant]
  12. ADIRO [Concomitant]
     Dates: start: 20090101

REACTIONS (1)
  - GASTROINTESTINAL TOXICITY [None]
